FAERS Safety Report 6474358-6 (Version None)
Quarter: 2009Q4

REPORT INFORMATION
  Report Type: 
  Country: None (occurrence: None)
  Receive Date: 20091123
  Receipt Date: 20090731
  Transmission Date: 20100525
  Serious: No
  Sender: FDA-Public Use
  Company Number: 8049734

PATIENT
  Age: 40 Year
  Sex: Female
  Weight: 65 kg

DRUGS (1)
  1. CIMZIA [Suspect]
     Indication: CROHN'S DISEASE
     Dosage: 400 MG SC
     Route: 058
     Dates: start: 20090628

REACTIONS (6)
  - ARTHRALGIA [None]
  - BONE PAIN [None]
  - EYE ALLERGY [None]
  - OCULAR HYPERAEMIA [None]
  - OEDEMA PERIPHERAL [None]
  - PYREXIA [None]
